FAERS Safety Report 10282577 (Version 2)
Quarter: 2014Q3

REPORT INFORMATION
  Report Type: Spontaneous
  Country: DE (occurrence: JP)
  Receive Date: 20140707
  Receipt Date: 20140725
  Transmission Date: 20150326
  Serious: Yes (Hospitalization)
  Sender: FDA-Public Use
  Company Number: JP-FRI-1000068734

PATIENT
  Age: 85 Year
  Sex: Male

DRUGS (8)
  1. MEMANTINE [Suspect]
     Active Substance: MEMANTINE
     Dosage: 20 MG
     Dates: end: 201406
  2. MEMANTINE [Suspect]
     Active Substance: MEMANTINE
     Dosage: 20 MG
     Route: 048
     Dates: start: 20140625
  3. URSO [Concomitant]
     Active Substance: URSODIOL
  4. DABIGATRAN ETEXILATE MESILATE [Concomitant]
  5. PITAVASTATIN [Concomitant]
     Active Substance: PITAVASTATIN
  6. YOKUKAN-SAN [Concomitant]
     Active Substance: UNSPECIFIED INGREDIENT
  7. CIBENOL [Concomitant]
     Active Substance: CIFENLINE
  8. DEPAKENE [Concomitant]
     Active Substance: VALPROIC ACID

REACTIONS (1)
  - Acute myocardial infarction [Recovering/Resolving]

NARRATIVE: CASE EVENT DATE: 20140615
